FAERS Safety Report 21206113 (Version 1)
Quarter: 2022Q3

REPORT INFORMATION
  Report Type: Spontaneous
  Country: GB (occurrence: GB)
  Receive Date: 20220812
  Receipt Date: 20220812
  Transmission Date: 20221027
  Serious: Yes (Hospitalization)
  Sender: FDA-Public Use
  Company Number: GB-STRIDES ARCOLAB LIMITED-2022SP010130

PATIENT
  Age: 46 Year
  Sex: Male

DRUGS (6)
  1. ACETAZOLAMIDE [Suspect]
     Active Substance: ACETAZOLAMIDE
     Indication: Malignant glaucoma
     Dosage: 250 MILLIGRAM, BID
     Route: 048
  2. DEXAMETHASONE [Suspect]
     Active Substance: DEXAMETHASONE
     Indication: Malignant glaucoma
     Dosage: UNK UNK, EVERY 2 HRS
     Route: 065
  3. ATROPINE [Suspect]
     Active Substance: ATROPINE
     Indication: Malignant glaucoma
     Dosage: UNK (ADMINISTERED TO THE LEFT EYE)
     Route: 047
  4. ATROPINE [Suspect]
     Active Substance: ATROPINE
     Dosage: UNK, TID (THREE TIMES DAILY, ADMINISTERED TO THE LEFT EYE)
     Route: 047
  5. BRIMONIDINE TARTRATE\TIMOLOL MALEATE [Suspect]
     Active Substance: BRIMONIDINE TARTRATE\TIMOLOL MALEATE
     Indication: Malignant glaucoma
     Dosage: UNK, BID (ADMINISTERED TO THE LEFT EYE)
     Route: 047
  6. CHLORAMPHENICOL [Suspect]
     Active Substance: CHLORAMPHENICOL
     Indication: Antibiotic therapy
     Dosage: UNK UNK, QID
     Route: 065

REACTIONS (4)
  - Eye pain [Unknown]
  - Therapy partial responder [Unknown]
  - Vomiting [Unknown]
  - Off label use [Unknown]
